FAERS Safety Report 6094913-5 (Version None)
Quarter: 2009Q1

REPORT INFORMATION
  Report Type: 
  Country: None (occurrence: None)
  Receive Date: 20090227
  Receipt Date: 20090218
  Transmission Date: 20090719
  Serious: Yes (Other)
  Sender: FDA-Public Use
  Company Number: GB-JNJFOC-20090204704

PATIENT
  Age: 53 Year
  Sex: Female

DRUGS (3)
  1. INFLIXIMAB [Suspect]
     Indication: BEHCET'S SYNDROME
     Route: 042
  2. METHOTREXATE [Concomitant]
     Indication: BEHCET'S SYNDROME
  3. DEFLAZACORT [Concomitant]
     Indication: BEHCET'S SYNDROME
     Dosage: BETWEEN 6-18 MG ONCE A DAY, EQUIVALENT TO 5-15 MG OF PREDNISOLONE

REACTIONS (2)
  - BURSITIS [None]
  - MYCOBACTERIUM KANSASII INFECTION [None]
